FAERS Safety Report 5332598-3 (Version None)
Quarter: 2007Q2

REPORT INFORMATION
  Report Type: 
  Country: None (occurrence: None)
  Receive Date: 20070523
  Receipt Date: 20070521
  Transmission Date: 20071010
  Serious: Yes (Death)
  Sender: FDA-Public Use
  Company Number: GB-ROXANE LABORATORIES, INC-2007-UK-01654UK

PATIENT
  Age: 24 Year
  Sex: Male

DRUGS (1)
  1. ORAMORPH SR [Suspect]
     Dosage: 10MG/5ML

REACTIONS (1)
  - OVERDOSE [None]
